FAERS Safety Report 24692357 (Version 1)
Quarter: 2024Q4

REPORT INFORMATION
  Report Type: Spontaneous
  Country: PL (occurrence: PL)
  Receive Date: 20241203
  Receipt Date: 20241203
  Transmission Date: 20250114
  Serious: Yes (Other)
  Sender: BAYER HEALTHCARE PHARMACEUTICALS INC.
  Company Number: None

PATIENT
  Age: 40 Year
  Sex: Female

DRUGS (1)
  1. ULTRAVIST [Suspect]
     Active Substance: IOPROMIDE
     Dosage: 93 ML, ONCE
     Route: 042
     Dates: start: 20201108, end: 20201108

REACTIONS (7)
  - Hypersensitivity [Recovered/Resolved]
  - Erythema [Recovered/Resolved]
  - Face oedema [Recovered/Resolved]
  - Localised oedema [Recovered/Resolved]
  - Catarrh [Recovered/Resolved]
  - Oedema mouth [Recovered/Resolved]
  - Gastrointestinal hypermotility [Recovered/Resolved]

NARRATIVE: CASE EVENT DATE: 20201108
